FAERS Safety Report 7110852-2 (Version None)
Quarter: 2010Q4

REPORT INFORMATION
  Report Type: 
  Country: None (occurrence: None)
  Receive Date: 20101118
  Receipt Date: 20101104
  Transmission Date: 20110411
  Serious: Yes (Other)
  Sender: FDA-Public Use
  Company Number: PHHY2010JP77464

PATIENT
  Sex: Female

DRUGS (1)
  1. MIKELAN LA 2% (NVO) [Suspect]
     Indication: GLAUCOMA
     Dosage: 1 GTT, QD
     Route: 047

REACTIONS (1)
  - CORNEAL DISORDER [None]
